FAERS Safety Report 6173632-0 (Version None)
Quarter: 2009Q2

REPORT INFORMATION
  Report Type: 
  Country: None (occurrence: None)
  Receive Date: 20090430
  Receipt Date: 20090421
  Transmission Date: 20091009
  Serious: Yes (Other)
  Sender: FDA-Public Use
  Company Number: US-MERCK-0805USA00920

PATIENT
  Age: 72 Year
  Sex: Male
  Weight: 91 kg

DRUGS (6)
  1. FOSAMAX [Suspect]
     Indication: OSTEOPOROSIS
     Route: 048
     Dates: start: 20040128, end: 20071001
  2. [THERAPY UNSPECIFIED] [Concomitant]
     Route: 065
     Dates: start: 19960101
  3. COZAAR [Concomitant]
     Indication: HYPERTENSION
     Route: 065
     Dates: start: 19980101
  4. TETRACYCLINE [Concomitant]
     Indication: ROSACEA
     Route: 065
     Dates: start: 20030101
  5. HYDROCODONE BITARTRATE [Concomitant]
     Indication: BACK PAIN
     Route: 065
     Dates: start: 20040101
  6. METROL (METRONIDAZOLE) [Concomitant]
     Indication: ROSACEA
     Route: 065
     Dates: start: 20030101

REACTIONS (25)
  - ABDOMINAL DISCOMFORT [None]
  - ADVERSE DRUG REACTION [None]
  - ANXIETY [None]
  - ARTHROPATHY [None]
  - ATRIAL FIBRILLATION [None]
  - BRONCHITIS [None]
  - BRONCHOSPASM [None]
  - CARDIAC DISORDER [None]
  - DENTAL CARIES [None]
  - DEPRESSION [None]
  - DYSPNOEA [None]
  - EJECTION FRACTION DECREASED [None]
  - FISTULA [None]
  - GASTROOESOPHAGEAL REFLUX DISEASE [None]
  - GOUTY ARTHRITIS [None]
  - HIATUS HERNIA [None]
  - NECROSIS [None]
  - OESOPHAGEAL DILATATION [None]
  - OESOPHAGEAL OBSTRUCTION [None]
  - ORAL TORUS [None]
  - OSTEOMYELITIS [None]
  - OSTEONECROSIS [None]
  - PERICARDIAL EFFUSION [None]
  - PLEURAL EFFUSION [None]
  - TOOTH ABSCESS [None]
